FAERS Safety Report 8711317 (Version 5)
Quarter: 2013Q1

REPORT INFORMATION
  Report Type: Spontaneous
  Country: US (occurrence: US)
  Receive Date: 20120807
  Receipt Date: 20130313
  Transmission Date: 20140127
  Serious: Yes (Hospitalization, Other)
  Sender: FDA-Public Use
  Company Number: US-009507513-2012SP023044

PATIENT
  Sex: Female
  Weight: 133.79 kg

DRUGS (1)
  1. NUVARING [Suspect]
     Indication: CONTRACEPTION
     Dosage: UNK
     Dates: start: 200801, end: 200906

REACTIONS (29)
  - Pulmonary embolism [Unknown]
  - Deep vein thrombosis [Recovered/Resolved]
  - Thrombosis [Unknown]
  - Emotional disorder [Unknown]
  - Autoimmune disorder [Unknown]
  - Migraine [Unknown]
  - Arthralgia [Unknown]
  - Back pain [Unknown]
  - Obesity [Unknown]
  - Irritable bowel syndrome [Unknown]
  - Depression [Unknown]
  - Metrorrhagia [Recovering/Resolving]
  - Uterine spasm [Unknown]
  - Hypomenorrhoea [Unknown]
  - Amenorrhoea [Unknown]
  - Inappropriate schedule of drug administration [Unknown]
  - Vulvovaginal discomfort [Unknown]
  - Uterine leiomyoma [Unknown]
  - Ovarian cyst [Recovered/Resolved]
  - Cyst [Unknown]
  - Menometrorrhagia [Unknown]
  - Vaginal discharge [Unknown]
  - Vaginal odour [Unknown]
  - Vaginitis gardnerella [Unknown]
  - Hiatus hernia [Unknown]
  - Ligament sprain [Unknown]
  - Antiphospholipid syndrome [Unknown]
  - Uterine cyst [Unknown]
  - Ovarian cyst [Unknown]
